FAERS Safety Report 17011600 (Version 2)
Quarter: 2019Q4

REPORT INFORMATION
  Report Type: Spontaneous
  Country: AU (occurrence: AU)
  Receive Date: 20191108
  Receipt Date: 20191125
  Transmission Date: 20200122
  Serious: Yes (Other)
  Sender: FDA-Public Use
  Company Number: AU-JNJFOC-20191047656

PATIENT
  Age: 48 Year
  Sex: Female

DRUGS (7)
  1. ZOELY [Concomitant]
     Active Substance: ESTRADIOL\NOMEGESTROL ACETATE
     Dosage: ESTRADIOL HEMIHYDRATE; NOMEGESTROL ACETATE
  2. ERGOCALCIFEROL. [Concomitant]
     Active Substance: ERGOCALCIFEROL
     Dosage: VIT D
  3. RIBOFLAVIN [Concomitant]
     Active Substance: RIBOFLAVIN
  4. ERENUMAB [Suspect]
     Active Substance: ERENUMAB
     Indication: MIGRAINE
     Route: 065
  5. NORTRIPTYLINE HYDROCHLORIDE. [Concomitant]
     Active Substance: NORTRIPTYLINE HYDROCHLORIDE
  6. CABERGOLINE. [Concomitant]
     Active Substance: CABERGOLINE
     Dosage: OCCASIONAL USE
  7. TOPAMAX [Suspect]
     Active Substance: TOPIRAMATE
     Indication: MIGRAINE
     Route: 065

REACTIONS (3)
  - Stress [Unknown]
  - Blood prolactin increased [Unknown]
  - Oedema peripheral [Unknown]
